FAERS Safety Report 10410294 (Version 1)
Quarter: 2014Q3

REPORT INFORMATION
  Report Type: Report from Study
  Country: ZA (occurrence: ZA)
  Receive Date: 20140826
  Receipt Date: 20140826
  Transmission Date: 20150326
  Serious: Yes (Other)
  Sender: FDA-Public Use
  Company Number: ZA-BAYER-2014-079880

PATIENT
  Sex: Female

DRUGS (1)
  1. BETAFERON [Suspect]
     Active Substance: INTERFERON BETA-1B
     Indication: MULTIPLE SCLEROSIS
     Dosage: UNK
     Dates: start: 200706

REACTIONS (20)
  - Injection site rash [None]
  - Corneal operation [None]
  - Paraesthesia [None]
  - Hysterectomy [None]
  - Fatigue [None]
  - Pyrexia [None]
  - Myalgia [None]
  - Pyrexia [Recovering/Resolving]
  - Diplegia [Recovering/Resolving]
  - Injection site discolouration [None]
  - Poor quality sleep [None]
  - Paraesthesia [Recovered/Resolved]
  - Pain in extremity [Recovered/Resolved]
  - Headache [Recovered/Resolved]
  - Arthralgia [None]
  - Nasopharyngitis [None]
  - Multiple sclerosis relapse [Recovered/Resolved]
  - Chills [Recovered/Resolved]
  - Multiple sclerosis [None]
  - Injection site reaction [None]

NARRATIVE: CASE EVENT DATE: 200706
